FAERS Safety Report 13134891 (Version 1)
Quarter: 2017Q1

REPORT INFORMATION
  Report Type: Spontaneous
  Country: GB (occurrence: GB)
  Receive Date: 20170120
  Receipt Date: 20170120
  Transmission Date: 20170428
  Serious: Yes (Hospitalization, Other)
  Sender: FDA-Public Use
  Company Number: GB-MYLANLABS-2017M1002612

PATIENT

DRUGS (11)
  1. SUCCINYLCHOLINE CHLORIDE. [Suspect]
     Active Substance: SUCCINYLCHOLINE CHLORIDE
     Indication: PRODUCT USED FOR UNKNOWN INDICATION
     Dosage: 100MG
     Route: 042
  2. SODIUM BICARBONATE. [Concomitant]
     Active Substance: SODIUM BICARBONATE
     Indication: RESUSCITATION
     Dosage: 8.4%
     Route: 065
  3. CEFOTAXIME [Concomitant]
     Active Substance: CEFOTAXIME SODIUM
     Indication: MENINGITIS PNEUMOCOCCAL
     Route: 042
  4. ACTRAPID [Concomitant]
     Active Substance: INSULIN HUMAN
     Indication: RESUSCITATION
     Dosage: 30 UNITS
     Route: 065
  5. CALCIUM CHLORIDE. [Concomitant]
     Active Substance: CALCIUM CHLORIDE
     Indication: RESUSCITATION
     Route: 065
  6. EPINEPHRINE. [Suspect]
     Active Substance: EPINEPHRINE
     Indication: HYPOTENSION
     Dosage: 1MG
     Route: 050
  7. NOREPINEPHRINE [Suspect]
     Active Substance: NOREPINEPHRINE\NOREPINEPHRINE BITARTRATE
     Indication: HYPOTENSION
     Route: 050
  8. PROPOFOL. [Concomitant]
     Active Substance: PROPOFOL
     Indication: PRODUCT USED FOR UNKNOWN INDICATION
     Dosage: 150MG
     Route: 042
  9. ACTRAPID [Concomitant]
     Active Substance: INSULIN HUMAN
     Dosage: 50%
     Route: 065
  10. BENZYLPENICILLIN [Concomitant]
     Active Substance: PENICILLIN G
     Indication: MENINGITIS PNEUMOCOCCAL
     Route: 042
  11. ATROPINE. [Concomitant]
     Active Substance: ATROPINE
     Indication: PRODUCT USED FOR UNKNOWN INDICATION
     Dosage: 1MG IN THREE BOLUSES
     Route: 040

REACTIONS (4)
  - Cardiac arrest [Recovered/Resolved]
  - Hyperkalaemia [Recovered/Resolved]
  - Acute pulmonary oedema [Recovered/Resolved]
  - Peripheral ischaemia [Recovering/Resolving]
